FAERS Safety Report 5170653-1 (Version None)
Quarter: 2006Q4

REPORT INFORMATION
  Report Type: 
  Country: None (occurrence: None)
  Receive Date: 20061205
  Receipt Date: 20061117
  Transmission Date: 20070319
  Serious: Yes (Death, Hospitalization, Other)
  Sender: FDA-Public Use
  Company Number: 2006-03-1748

PATIENT
  Age: 55 Year
  Sex: Male
  Weight: 79 kg

DRUGS (6)
  1. TEMODAL [Suspect]
     Indication: GLIOBLASTOMA MULTIFORME
     Dosage: 145 MG;PO
     Route: 048
     Dates: start: 20060301, end: 20060319
  2. DEXAMETHASONE [Concomitant]
  3. CITALOPRAM HYDROBROMIDE [Concomitant]
  4. LANSOPRAZOLE [Concomitant]
  5. COTRIM D.S. [Concomitant]
  6. RADIATION THERPAY [Concomitant]

REACTIONS (10)
  - ABDOMINAL DISTENSION [None]
  - ABDOMINAL PAIN [None]
  - EATING DISORDER [None]
  - FATIGUE [None]
  - GASTROINTESTINAL HYPOMOTILITY [None]
  - GLIOBLASTOMA MULTIFORME [None]
  - ILEUS PARALYTIC [None]
  - MALIGNANT NEOPLASM PROGRESSION [None]
  - VOMITING [None]
  - WEIGHT DECREASED [None]
